FAERS Safety Report 6794345-8 (Version None)
Quarter: 2010Q2

REPORT INFORMATION
  Report Type: 
  Country: None (occurrence: None)
  Receive Date: 20100625
  Receipt Date: 20100616
  Transmission Date: 20101027
  Serious: No
  Sender: FDA-Public Use
  Company Number: US-BIOGENIDEC-2010BI020747

PATIENT
  Age: 42 Year
  Sex: Male

DRUGS (1)
  1. TYSABRI [Suspect]
     Indication: MULTIPLE SCLEROSIS
     Route: 042
     Dates: start: 20100412

REACTIONS (5)
  - BACK PAIN [None]
  - DRUG EFFECT DECREASED [None]
  - FLUSHING [None]
  - LOSS OF CONTROL OF LEGS [None]
  - PAIN IN EXTREMITY [None]
